FAERS Safety Report 4804777-2 (Version None)
Quarter: 2005Q4

REPORT INFORMATION
  Report Type: 
  Country: None (occurrence: None)
  Receive Date: 20051017
  Receipt Date: 20051004
  Transmission Date: 20060501
  Serious: Yes (Other)
  Sender: FDA-Public Use
  Company Number: 2005137338

PATIENT
  Age: 38 Year
  Sex: Male

DRUGS (1)
  1. XALATAN [Suspect]
     Indication: GLAUCOMA
     Dosage: 1 DROP EACH EYE EVERY NIGHT(SINGLE INTERVAL: EVERYDAY), OPHTHALMIC
     Route: 047
     Dates: start: 20040101, end: 20050901

REACTIONS (3)
  - INTRAOCULAR PRESSURE INCREASED [None]
  - PIGMENTARY GLAUCOMA [None]
  - VISUAL DISTURBANCE [None]
